FAERS Safety Report 9902528 (Version 1)
Quarter: 2014Q1

REPORT INFORMATION
  Report Type: Spontaneous
  Country: US (occurrence: US)
  Receive Date: 20140217
  Receipt Date: 20140217
  Transmission Date: 20141002
  Serious: No
  Sender: FDA-Public Use
  Company Number: US-GILEAD-2011-0043761

PATIENT
  Age: 41 Year
  Sex: Female

DRUGS (3)
  1. LETAIRIS [Suspect]
     Indication: PRODUCT USED FOR UNKNOWN INDICATION
     Route: 048
     Dates: start: 20110622
  2. VELETRI [Concomitant]
  3. ADCIRCA [Concomitant]

REACTIONS (5)
  - Epistaxis [Unknown]
  - Dizziness [Unknown]
  - Haemoptysis [Unknown]
  - Ear discomfort [Unknown]
  - Rash [Unknown]
